FAERS Safety Report 9240798 (Version 1)
Quarter: 2013Q2

REPORT INFORMATION
  Report Type: Spontaneous
  Country: US (occurrence: None)
  Receive Date: 20130418
  Receipt Date: 20130418
  Transmission Date: 20140414
  Serious: Yes (Hospitalization)
  Sender: FDA-Public Use
  Company Number: None

PATIENT
  Age: 65 Year
  Sex: Male
  Weight: 98.2 kg

DRUGS (2)
  1. CETUXIMAB [Suspect]
     Indication: SQUAMOUS CELL CARCINOMA OF THE HYPOPHARYNX
     Route: 042
     Dates: start: 20130408, end: 20130408
  2. CETUXIMAB [Suspect]
     Indication: METASTASIS
     Route: 042
     Dates: start: 20130408, end: 20130408

REACTIONS (1)
  - Anaphylactic reaction [None]
